FAERS Safety Report 19442331 (Version 1)
Quarter: 2021Q2

REPORT INFORMATION
  Report Type: Other
  Country: US (occurrence: US)
  Receive Date: 20210621
  Receipt Date: 20210621
  Transmission Date: 20210717
  Serious: No
  Sender: FDA-Public Use
  Company Number: US-ACORDA-ACO_168620_2021

PATIENT
  Sex: Male

DRUGS (3)
  1. CARBIDOPA AND LEVODOPA [Concomitant]
     Active Substance: CARBIDOPA\LEVODOPA
     Indication: PRODUCT USED FOR UNKNOWN INDICATION
     Dosage: 25/100 MG, THREE TIMES DAILY WITH MEALS
     Route: 065
  2. INBRIJA [Suspect]
     Active Substance: LEVODOPA
     Indication: PARKINSON^S DISEASE
     Dosage: 2 DOSAGE FORM, PRN
     Dates: start: 20210322, end: 20210413
  3. CARBIDOPA AND LEVODOPA [Concomitant]
     Active Substance: CARBIDOPA\LEVODOPA
     Dosage: 25 MG DAILY IN THE MORNING
     Route: 065

REACTIONS (8)
  - Palpitations [Recovered/Resolved]
  - Anxiety [Recovered/Resolved]
  - Condition aggravated [Recovered/Resolved]
  - Dyspnoea [Recovered/Resolved]
  - Nervousness [Recovered/Resolved]
  - Insomnia [Recovered/Resolved]
  - Psychomotor hyperactivity [Recovered/Resolved]
  - Restlessness [Recovered/Resolved]
